FAERS Safety Report 9694097 (Version 1)
Quarter: 2013Q4

REPORT INFORMATION
  Report Type: Report from Study
  Country: CA (occurrence: CA)
  Receive Date: 20131118
  Receipt Date: 20131118
  Transmission Date: 20140711
  Serious: Yes (Hospitalization)
  Sender: FDA-Public Use
  Company Number: CA-ABBVIE-13P-028-1168632-00

PATIENT
  Sex: Female

DRUGS (3)
  1. HUMIRA [Suspect]
     Indication: CROHN^S DISEASE
     Route: 058
     Dates: start: 20111221, end: 201307
  2. HUMIRA [Suspect]
     Dosage: ANOTHER INDUCTION DOSE
     Route: 058
     Dates: start: 201307, end: 201307
  3. HUMIRA [Suspect]
     Route: 058
     Dates: start: 201307

REACTIONS (1)
  - Intestinal fistula [Unknown]
